FAERS Safety Report 5573909-3 (Version None)
Quarter: 2007Q4

REPORT INFORMATION
  Report Type: 
  Country: None (occurrence: None)
  Receive Date: 20071220
  Receipt Date: 20071217
  Transmission Date: 20080405
  Serious: Yes (Disabling)
  Sender: FDA-Public Use
  Company Number: OSCN-PR-0712S-0502

PATIENT
  Sex: Female

DRUGS (1)
  1. OMNISCAN [Suspect]
     Indication: TRANSIENT ISCHAEMIC ATTACK
     Dosage: SINGLE DOSE, I.V.
     Route: 042
     Dates: start: 20031125, end: 20031125

REACTIONS (1)
  - NEPHROGENIC SYSTEMIC FIBROSIS [None]
